FAERS Safety Report 7810867-2 (Version None)
Quarter: 2011Q4

REPORT INFORMATION
  Report Type: 
  Country: None (occurrence: None)
  Receive Date: 20111012
  Receipt Date: 20111012
  Transmission Date: 20120403
  Serious: Yes (Hospitalization)
  Sender: FDA-Public Use
  Company Number: None

PATIENT
  Sex: Female
  Weight: 72.7 kg

DRUGS (2)
  1. TAXOL [Suspect]
     Dosage: 243 MG
     Dates: end: 20110823
  2. CISPLATIN [Suspect]
     Dosage: 135 MG
     Dates: end: 20110824

REACTIONS (2)
  - PULMONARY EMBOLISM [None]
  - ABDOMINAL PAIN [None]
